FAERS Safety Report 5548157-3 (Version None)
Quarter: 2007Q4

REPORT INFORMATION
  Report Type: 
  Country: None (occurrence: None)
  Receive Date: 20071211
  Receipt Date: 20070314
  Transmission Date: 20080405
  Serious: No
  Sender: FDA-Public Use
  Company Number: US-AMGEN-KDL212543

PATIENT
  Sex: Female
  Weight: 67.2 kg

DRUGS (15)
  1. ENBREL [Suspect]
     Indication: RHEUMATOID ARTHRITIS
     Route: 058
     Dates: start: 20060401
  2. TOPROL-XL [Concomitant]
  3. DIOVAN [Concomitant]
  4. FOLIC ACID [Concomitant]
  5. EFFEXOR [Concomitant]
  6. SULFASALAZINE [Concomitant]
  7. RESTORIL [Concomitant]
  8. TYLOX [Concomitant]
  9. CALCIUM [Concomitant]
  10. ACTONEL [Concomitant]
  11. DURAGESIC-100 [Concomitant]
  12. LIDODERM PATCH (ENDO PHARMACEUTICALS) [Concomitant]
  13. VITAMIN CAP [Concomitant]
  14. ZOCOR [Concomitant]
  15. PLAQUENIL [Concomitant]

REACTIONS (3)
  - DEPRESSION [None]
  - INCREASED TENDENCY TO BRUISE [None]
  - RHEUMATOID ARTHRITIS [None]
